FAERS Safety Report 21532082 (Version 2)
Quarter: 2022Q4

REPORT INFORMATION
  Report Type: Report from Study
  Country: US (occurrence: US)
  Receive Date: 20221101
  Receipt Date: 20221102
  Transmission Date: 20230113
  Serious: No
  Sender: FDA-Public Use
  Company Number: US-NOVARTISTESTPH-NVSC2022US244570

PATIENT
  Sex: Male

DRUGS (2)
  1. OMNITROPE [Suspect]
     Active Substance: SOMATROPIN
     Indication: Product used for unknown indication
     Dosage: 5.8 MG, QD ( 5.8MG 8LYV)
     Route: 065
     Dates: start: 20221005
  2. OMNITROPE [Suspect]
     Active Substance: SOMATROPIN
     Dosage: UNK (STRENGTH:5 MG/ML)
     Route: 065

REACTIONS (3)
  - Malaise [Unknown]
  - Visual impairment [Unknown]
  - Headache [Unknown]
